FAERS Safety Report 23783721 (Version 1)
Quarter: 2024Q2

REPORT INFORMATION
  Report Type: Report from Study
  Country: US (occurrence: US)
  Receive Date: 20240425
  Receipt Date: 20240425
  Transmission Date: 20240715
  Serious: Yes (Hospitalization)
  Sender: FDA-Public Use
  Company Number: US-TAKEDA-2024TUS022967

PATIENT
  Sex: Male

DRUGS (2)
  1. FRUQUINTINIB [Suspect]
     Active Substance: FRUQUINTINIB
     Indication: Mixed hepatocellular cholangiocarcinoma
     Dosage: 5 MILLIGRAM
     Route: 048
  2. FRUQUINTINIB [Suspect]
     Active Substance: FRUQUINTINIB
     Dosage: 4 MILLIGRAM, QD
     Route: 048
     Dates: start: 202401

REACTIONS (4)
  - Pain [Unknown]
  - Cardiovascular disorder [Unknown]
  - Dyspepsia [Unknown]
  - Fatigue [Unknown]
